FAERS Safety Report 24645636 (Version 4)
Quarter: 2025Q3

REPORT INFORMATION
  Report Type: Spontaneous
  Country: EU (occurrence: EU)
  Receive Date: 20241121
  Receipt Date: 20250904
  Transmission Date: 20251021
  Serious: Yes (Hospitalization, Other)
  Sender: IMMUNOCORE
  Company Number: EU-Medison-000719

PATIENT

DRUGS (4)
  1. KIMMTRAK [Suspect]
     Active Substance: TEBENTAFUSP-TEBN
     Indication: Metastatic ocular melanoma
     Route: 042
     Dates: start: 20240930
  2. KIMMTRAK [Suspect]
     Active Substance: TEBENTAFUSP-TEBN
     Route: 042
     Dates: start: 20241022
  3. NELVUTAMIG [Suspect]
     Active Substance: NELVUTAMIG
     Indication: Metastatic ocular melanoma
  4. NIVOLUMAB [Suspect]
     Active Substance: NIVOLUMAB
     Indication: Metastatic ocular melanoma
     Dates: start: 202403, end: 202406

REACTIONS (1)
  - Glucocorticoid deficiency [Recovered/Resolved]

NARRATIVE: CASE EVENT DATE: 20241001
